FAERS Safety Report 13552442 (Version 4)
Quarter: 2017Q2

REPORT INFORMATION
  Report Type: Spontaneous
  Country: JP (occurrence: JP)
  Receive Date: 20170517
  Receipt Date: 20170613
  Transmission Date: 20170830
  Serious: Yes (Hospitalization)
  Sender: FDA-Public Use
  Company Number: JP-ROCHE-1935080

PATIENT
  Age: 89 Year
  Sex: Male
  Weight: 48 kg

DRUGS (5)
  1. NEUROVITAN (JAPAN) [Concomitant]
     Dosage: DOSAGE IS UNCERTAIN.
     Route: 048
     Dates: end: 20170503
  2. ROCEPHIN [Suspect]
     Active Substance: CEFTRIAXONE SODIUM
     Indication: PNEUMONIA ASPIRATION
     Route: 041
     Dates: start: 20170421, end: 20170502
  3. VOGLIBOSE [Concomitant]
     Active Substance: VOGLIBOSE
     Dosage: DOSAGE IS UNCERTAIN.
     Route: 048
     Dates: end: 20170503
  4. RISPERIDONE. [Concomitant]
     Active Substance: RISPERIDONE
     Dosage: DOSAGE IS UNCERTAIN.
     Route: 048
     Dates: end: 20170503
  5. JANUVIA [Concomitant]
     Active Substance: SITAGLIPTIN PHOSPHATE
     Dosage: DOSAGE IS UNCERTAIN.
     Route: 048
     Dates: end: 20170503

REACTIONS (2)
  - Thrombocytopenia [Recovered/Resolved]
  - Red blood cell count decreased [Unknown]

NARRATIVE: CASE EVENT DATE: 20170502
